FAERS Safety Report 18368044 (Version 2)
Quarter: 2020Q4

REPORT INFORMATION
  Report Type: Spontaneous
  Country: US (occurrence: US)
  Receive Date: 20201009
  Receipt Date: 20201203
  Transmission Date: 20210114
  Serious: Yes (Death, Other)
  Sender: FDA-Public Use
  Company Number: US-PURDUE-USA-2020-0169319

PATIENT
  Age: 66 Year
  Sex: Female

DRUGS (5)
  1. PERCOCET [Suspect]
     Active Substance: ACETAMINOPHEN\OXYCODONE HYDROCHLORIDE
     Indication: PAIN
     Dosage: UNK, BID
     Route: 065
     Dates: start: 200807, end: 201811
  2. OXYCONTIN [Suspect]
     Active Substance: OXYCODONE HYDROCHLORIDE
     Indication: PAIN
     Dosage: UNK, BID
     Route: 048
     Dates: start: 200807, end: 201811
  3. PERCOCET [Suspect]
     Active Substance: ACETAMINOPHEN\OXYCODONE HYDROCHLORIDE
     Indication: BREAKTHROUGH PAIN
     Dosage: UNK, TID
     Route: 065
     Dates: start: 200807, end: 201811
  4. OXYCONTIN [Suspect]
     Active Substance: OXYCODONE HYDROCHLORIDE
     Indication: BREAKTHROUGH PAIN
     Dosage: UNK, TID
     Route: 048
     Dates: start: 200807, end: 201811
  5. OXYCODONE/ ACETAMINOPHEN TABLETS [Suspect]
     Active Substance: ACETAMINOPHEN\OXYCODONE HYDROCHLORIDE
     Indication: PRODUCT USED FOR UNKNOWN INDICATION
     Dosage: UNK
     Route: 048
     Dates: start: 200807, end: 201811

REACTIONS (15)
  - Peripheral vascular disorder [Unknown]
  - Drug tolerance [Unknown]
  - Osteoarthritis [Unknown]
  - Emotional distress [Unknown]
  - Sepsis [Fatal]
  - Neuropathy peripheral [Unknown]
  - Post laminectomy syndrome [Unknown]
  - Pain [Unknown]
  - Urinary tract infection [Fatal]
  - Rheumatoid arthritis [Unknown]
  - Ischaemia [Unknown]
  - Drug dependence [Unknown]
  - Wound [Unknown]
  - Cerebrovascular accident [Unknown]
  - Injury [Unknown]

NARRATIVE: CASE EVENT DATE: 20181109
